FAERS Safety Report 9897733 (Version 1)
Quarter: 2014Q1

REPORT INFORMATION
  Report Type: Spontaneous
  Country: US (occurrence: US)
  Receive Date: 20140214
  Receipt Date: 20140214
  Transmission Date: 20141002
  Serious: Yes (Death, Hospitalization)
  Sender: FDA-Public Use
  Company Number: US-NOVEN-14US008845

PATIENT
  Age: 37 Year
  Sex: Male

DRUGS (8)
  1. FENTANYL [Suspect]
     Indication: PAIN
     Dosage: 100 UG/HR, UNK
     Route: 062
  2. FENTANYL [Suspect]
     Dosage: 75 UG/HR, UNK
     Route: 062
  3. DIAZEPAM [Concomitant]
     Indication: PRODUCT USED FOR UNKNOWN INDICATION
  4. GABAPENTIN [Concomitant]
     Indication: PRODUCT USED FOR UNKNOWN INDICATION
     Route: 048
  5. CYANOCOBALAMIN [Concomitant]
     Indication: PRODUCT USED FOR UNKNOWN INDICATION
     Route: 048
  6. CALCIUM WITH VITAMIN D             /00944201/ [Concomitant]
     Indication: PRODUCT USED FOR UNKNOWN INDICATION
     Route: 048
  7. METHADONE [Concomitant]
     Indication: PRODUCT USED FOR UNKNOWN INDICATION
     Route: 048
  8. ACETAMINOPHEN W/HYDROCODONE [Concomitant]
     Indication: PRODUCT USED FOR UNKNOWN INDICATION
     Route: 048

REACTIONS (8)
  - Cardio-respiratory arrest [Recovered/Resolved]
  - Death [Fatal]
  - Toxicity to various agents [Fatal]
  - Asphyxia [Fatal]
  - Hypoventilation [Fatal]
  - Drug administration error [Fatal]
  - Unresponsive to stimuli [Fatal]
  - Haematoma [Not Recovered/Not Resolved]
